FAERS Safety Report 22931620 (Version 3)
Quarter: 2023Q4

REPORT INFORMATION
  Report Type: Spontaneous
  Country: CO (occurrence: CO)
  Receive Date: 20230911
  Receipt Date: 20231130
  Transmission Date: 20240109
  Serious: Yes (Other)
  Sender: FDA-Public Use
  Company Number: CO-ORGANON-O2309COL001424

PATIENT
  Age: 23 Year
  Sex: Female

DRUGS (2)
  1. ETONOGESTREL [Interacting]
     Active Substance: ETONOGESTREL
     Dosage: 1 IMPLANT
     Route: 059
     Dates: start: 202302
  2. ISONIAZID\RIFAMPIN [Interacting]
     Active Substance: ISONIAZID\RIFAMPIN
     Indication: Tuberculosis
     Dosage: DOSE 48 (DID NOT SPECIFY GRAMMAGE)

REACTIONS (4)
  - Pregnancy with implant contraceptive [Recovered/Resolved]
  - Abortion induced [Recovered/Resolved]
  - Unintended pregnancy [Recovered/Resolved]
  - Labelled drug-drug interaction medication error [Recovered/Resolved]

NARRATIVE: CASE EVENT DATE: 20230101
